FAERS Safety Report 22212754 (Version 1)
Quarter: 2023Q2

REPORT INFORMATION
  Report Type: Spontaneous
  Country: US (occurrence: US)
  Receive Date: 20230414
  Receipt Date: 20230414
  Transmission Date: 20230721
  Serious: Yes (Other)
  Sender: FDA-Public Use
  Company Number: US-AMGEN-USASP2023060662

PATIENT
  Age: 53 Year
  Sex: Female

DRUGS (14)
  1. REPATHA [Suspect]
     Active Substance: EVOLOCUMAB
     Indication: Product used for unknown indication
     Dosage: 140 MILLIGRAM, Q2WK
     Route: 058
  2. AFLURIA QUAD [Concomitant]
     Dosage: 60 MICROGRAM
  3. ALBUTEROL SULFATE [Concomitant]
     Active Substance: ALBUTEROL SULFATE
     Dosage: 2.5 MICROGRAM/ 3ML
  4. ALBUTEROL SULFATE [Concomitant]
     Active Substance: ALBUTEROL SULFATE
     Dosage: 90 MICROGRAM
  5. AZELASTINE [Concomitant]
     Active Substance: AZELASTINE
     Dosage: 137 MICROGRAM
  6. BREO ELLIPTA [Concomitant]
     Active Substance: FLUTICASONE FUROATE\VILANTEROL TRIFENATATE
     Dosage: UNK
  7. BROMPHENIRAMINE;PHENYLEPHRINE [Concomitant]
     Dosage: 10 MILLIGRAM
  8. OZEMPIC [Concomitant]
     Active Substance: SEMAGLUTIDE
     Dosage: 1 MILLIGRAM
  9. VALACYCLOVIR [Concomitant]
     Active Substance: VALACYCLOVIR HYDROCHLORIDE
     Dosage: UNK
  10. ASPIRIN [Concomitant]
     Active Substance: ASPIRIN
     Dosage: UNK
  11. NORTRIPTYLINE [Concomitant]
     Active Substance: NORTRIPTYLINE
     Dosage: 10 MILLIGRAM
  12. BENZONATATE [Concomitant]
     Active Substance: BENZONATATE
     Dosage: 10 MILLIGRAM
  13. CYCLOBENZAPRINE [Concomitant]
     Active Substance: CYCLOBENZAPRINE
     Dosage: 10 MILLIGRAM
  14. OXYCODONE AND ACETAMINOPHEN [Concomitant]
     Active Substance: ACETAMINOPHEN\OXYCODONE HYDROCHLORIDE
     Dosage: UNK

REACTIONS (15)
  - Bradycardia [Unknown]
  - Angina pectoris [Unknown]
  - Transient ischaemic attack [Unknown]
  - Chest pain [Unknown]
  - Cardiac murmur [Unknown]
  - Weight decreased [Unknown]
  - Palpitations [Unknown]
  - Constipation [Unknown]
  - Bursitis [Unknown]
  - Neuralgia [Unknown]
  - Cough [Recovered/Resolved]
  - Dizziness [Unknown]
  - Hypertension [Unknown]
  - Arthralgia [Unknown]
  - Back pain [Unknown]

NARRATIVE: CASE EVENT DATE: 20160407
